FAERS Safety Report 6004731-1 (Version None)
Quarter: 2008Q4

REPORT INFORMATION
  Report Type: 
  Country: None (occurrence: None)
  Receive Date: 20081216
  Receipt Date: 20081208
  Transmission Date: 20090506
  Serious: Yes (Hospitalization)
  Sender: FDA-Public Use
  Company Number: CA-ELI_LILLY_AND_COMPANY-CA200810000758

PATIENT
  Sex: Female

DRUGS (7)
  1. FORTEO [Suspect]
     Indication: OSTEOPOROSIS
     Dosage: 20 UG, DAILY (1/D)
     Route: 058
     Dates: start: 20080904
  2. FORTEO [Suspect]
     Dosage: 20 UG, DAILY (1/D)
     Route: 058
  3. BISOPROLOL FUMARATE [Concomitant]
  4. ZOPICLONE [Concomitant]
  5. OMEPRAZOLE [Concomitant]
  6. CALCIUM                                 /N/A/ [Concomitant]
  7. MULTI-VITAMINS [Concomitant]

REACTIONS (3)
  - ATRIAL FIBRILLATION [None]
  - MUSCLE SPASMS [None]
  - PALPITATIONS [None]
